FAERS Safety Report 17592882 (Version 1)
Quarter: 2020Q1

REPORT INFORMATION
  Report Type: Not Available
  Country: US (occurrence: US)
  Receive Date: 20200327
  Receipt Date: 20200327
  Transmission Date: 20200409
  Serious: No
  Sender: FDA-Public Use
  Company Number: US-NEUROCRINE BIOSCIENCES INC.-2020NBI00928

PATIENT
  Sex: Female

DRUGS (8)
  1. VITAMIN D [Concomitant]
     Active Substance: VITAMIN D NOS
  2. LISINOPRIL. [Concomitant]
     Active Substance: LISINOPRIL
  3. ALPRAZOLAM. [Concomitant]
     Active Substance: ALPRAZOLAM
  4. INGREZZA [Suspect]
     Active Substance: VALBENAZINE
     Indication: TARDIVE DYSKINESIA
     Route: 048
  5. ASPIRIN. [Concomitant]
     Active Substance: ASPIRIN
  6. MEMANTINE. [Concomitant]
     Active Substance: MEMANTINE
  7. FERROUS SULFATE. [Concomitant]
     Active Substance: FERROUS SULFATE
  8. QUINAPRIL. [Concomitant]
     Active Substance: QUINAPRIL

REACTIONS (1)
  - Drooling [Unknown]
